FAERS Safety Report 6035634-4 (Version None)
Quarter: 2009Q1

REPORT INFORMATION
  Report Type: 
  Country: None (occurrence: None)
  Receive Date: 20090113
  Receipt Date: 20090106
  Transmission Date: 20090719
  Serious: Yes (Other)
  Sender: FDA-Public Use
  Company Number: PHEH2009US00491

PATIENT
  Sex: Female
  Weight: 55.782 kg

DRUGS (4)
  1. RECLAST [Suspect]
     Dosage: 5 MG, ONCE/SINGLE
     Dates: start: 20090106, end: 20090106
  2. LANOXIN [Concomitant]
     Dosage: UNK, UNK
  3. PLAVIX [Concomitant]
     Dosage: UNK, UNK
  4. ASPIRIN [Concomitant]
     Dosage: UNK, UNK

REACTIONS (4)
  - BLOOD PRESSURE DECREASED [None]
  - DIZZINESS [None]
  - FEELING HOT [None]
  - NAUSEA [None]
